FAERS Safety Report 20962494 (Version 2)
Quarter: 2022Q3

REPORT INFORMATION
  Report Type: Spontaneous
  Country: US (occurrence: US)
  Receive Date: 20220615
  Receipt Date: 20220721
  Transmission Date: 20221027
  Serious: Yes (Other)
  Sender: FDA-Public Use
  Company Number: US-VIIV HEALTHCARE LIMITED-US2022AMR090558

PATIENT

DRUGS (10)
  1. CABENUVA [Suspect]
     Active Substance: CABOTEGRAVIR\RILPIVIRINE
     Indication: HIV infection
     Dosage: UNK UNK, Z (600MG/3 ML CABOTEGRAVIR AND 900 MG/3 ML RILPIVIRINE EVERY 2 MONTHLY)
     Route: 030
     Dates: start: 20220314
  2. CABENUVA [Suspect]
     Active Substance: CABOTEGRAVIR\RILPIVIRINE
     Dosage: UNK UNK, Z (600MG/3 ML CABOTEGRAVIR AND 900 MG/3 ML RILPIVIRINE EVERY 2 MONTHLY)
     Route: 030
     Dates: start: 20220411
  3. CABENUVA [Suspect]
     Active Substance: CABOTEGRAVIR\RILPIVIRINE
     Dosage: UNK UNK, Z (600MG/3 ML CABOTEGRAVIR AND 900 MG/3 ML RILPIVIRINE EVERY 2 MONTHLY)
     Route: 030
     Dates: start: 20220606
  4. BIKTARVY [Concomitant]
     Active Substance: BICTEGRAVIR SODIUM\EMTRICITABINE\TENOFOVIR ALAFENAMIDE FUMARATE
     Indication: HIV infection
     Dosage: UNK
     Dates: start: 20181206
  5. ASPIRIN [Concomitant]
     Active Substance: ASPIRIN
     Indication: Product used for unknown indication
     Dosage: UNK
  6. LOSARTAN [Concomitant]
     Active Substance: LOSARTAN
     Indication: Product used for unknown indication
     Dosage: UNK
  7. ATORVASTATIN [Concomitant]
     Active Substance: ATORVASTATIN
     Indication: Product used for unknown indication
     Dosage: UNK
  8. VITAMIN B12 [Concomitant]
     Active Substance: CYANOCOBALAMIN
     Indication: Product used for unknown indication
     Dosage: UNK
  9. OMEPRAZOLE [Concomitant]
     Active Substance: OMEPRAZOLE
     Indication: Product used for unknown indication
     Dosage: UNK
  10. METOPROLOL [Concomitant]
     Active Substance: METOPROLOL
     Indication: Product used for unknown indication
     Dosage: UNK

REACTIONS (13)
  - Generalised tonic-clonic seizure [Unknown]
  - Loss of consciousness [Unknown]
  - Head injury [Unknown]
  - Skin abrasion [Unknown]
  - Limb injury [Unknown]
  - Musculoskeletal stiffness [Unknown]
  - Blood electrolytes abnormal [Unknown]
  - Blood glucose increased [Unknown]
  - Blood creatinine increased [Unknown]
  - Carbon dioxide decreased [Unknown]
  - Disorientation [Unknown]
  - Somnolence [Unknown]
  - Exposure to communicable disease [Unknown]

NARRATIVE: CASE EVENT DATE: 20220101
